FAERS Safety Report 6788241-X (Version None)
Quarter: 2010Q2

REPORT INFORMATION
  Report Type: 
  Country: None (occurrence: None)
  Receive Date: 20100623
  Receipt Date: 20080214
  Transmission Date: 20101027
  Serious: No
  Sender: FDA-Public Use
  Company Number: US-PFIZER INC-2008015214

PATIENT
  Sex: Male

DRUGS (6)
  1. DEPO-PROVERA SUSPENSION/INJ [Suspect]
     Indication: AGGRESSION
  2. DEPO-PROVERA SUSPENSION/INJ [Suspect]
     Indication: OFF LABEL USE
  3. PROZAC [Concomitant]
     Dosage: IN THE MORNING
  4. CALCIUM CARBONATE [Concomitant]
     Dosage: AT BEDTIME
  5. VITAMIN D [Concomitant]
  6. CLARITIN [Concomitant]

REACTIONS (2)
  - DYSPHONIA [None]
  - NASOPHARYNGITIS [None]
